FAERS Safety Report 5094843-1 (Version None)
Quarter: 2006Q3

REPORT INFORMATION
  Report Type: 
  Country: None (occurrence: None)
  Receive Date: 20060831
  Receipt Date: 20060831
  Transmission Date: 20061208
  Serious: Yes (Life-Threatening, Other)
  Sender: FDA-Public Use
  Company Number: None

PATIENT
  Age: 17 Year
  Sex: Female
  Weight: 72.58 kg

DRUGS (9)
  1. ACETAZOLAMIDE [Suspect]
     Dosage: 250MG THREE TIMES DAILY PO
     Route: 048
  2. ESOMEPRAZOLE MAGNESIUM [Concomitant]
  3. CREON [Concomitant]
  4. TEGASEROD [Concomitant]
  5. METHADONE HCL [Concomitant]
  6. MONTELUKAST [Concomitant]
  7. HYDROXYCHLOROQUINE SULFATE [Concomitant]
  8. WARFARIN SODIUM [Concomitant]
  9. FEXOFENODINE [Concomitant]

REACTIONS (2)
  - ABDOMINAL PAIN UPPER [None]
  - PANCREATITIS [None]
